FAERS Safety Report 7292637-X (Version None)
Quarter: 2011Q1

REPORT INFORMATION
  Report Type: 
  Country: None (occurrence: None)
  Receive Date: 20110215
  Receipt Date: 20110207
  Transmission Date: 20110831
  Serious: Yes (Hospitalization)
  Sender: FDA-Public Use
  Company Number: BR-SANOFI-AVENTIS-2011SA007994

PATIENT
  Sex: Male
  Weight: 3.61 kg

DRUGS (7)
  1. ENOXAPARIN SODIUM [Concomitant]
     Indication: THROMBOSIS
     Route: 064
     Dates: start: 20100621, end: 20110105
  2. CLEXANE [Suspect]
     Dates: start: 20110101, end: 20110112
  3. CLEXANE [Suspect]
     Dates: start: 20110101
  4. FOLIC ACID [Concomitant]
     Indication: PROPHYLAXIS
     Route: 064
     Dates: start: 20100609, end: 20110105
  5. WARFARIN [Concomitant]
     Indication: THROMBOSIS
     Dates: start: 20110101, end: 20110112
  6. CLEXANE [Suspect]
     Indication: THROMBOSIS
     Route: 064
     Dates: start: 20100621, end: 20110105
  7. FERROUS SULFATE TAB [Concomitant]
     Route: 064
     Dates: start: 20100609, end: 20110105

REACTIONS (3)
  - DRUG EXPOSURE VIA BREAST MILK [None]
  - DRUG EXPOSURE DURING PREGNANCY [None]
  - CELLULITIS [None]
